FAERS Safety Report 23453935 (Version 1)
Quarter: 2024Q1

REPORT INFORMATION
  Report Type: Report from Study
  Country: US (occurrence: US)
  Receive Date: 20240129
  Receipt Date: 20240129
  Transmission Date: 20240409
  Serious: Yes (Other)
  Sender: FDA-Public Use
  Company Number: US-ABBVIE-5604192

PATIENT
  Age: 61 Year
  Sex: Female

DRUGS (1)
  1. RINVOQ [Suspect]
     Active Substance: UPADACITINIB
     Indication: Axial spondyloarthritis
     Route: 048
     Dates: start: 20231031, end: 20240105

REACTIONS (7)
  - Loss of consciousness [Recovered/Resolved]
  - Constipation [Recovered/Resolved]
  - White blood cell count increased [Unknown]
  - Abdominal discomfort [Recovered/Resolved]
  - Cough [Recovered/Resolved]
  - Fall [Recovered/Resolved]
  - Face injury [Recovered/Resolved]

NARRATIVE: CASE EVENT DATE: 20231121
